FAERS Safety Report 11866891 (Version 1)
Quarter: 2015Q4

REPORT INFORMATION
  Report Type: Report from Study
  Country: PK (occurrence: PK)
  Receive Date: 20151224
  Receipt Date: 20151224
  Transmission Date: 20160305
  Serious: Yes (Other)
  Sender: FDA-Public Use
  Company Number: PHHY2015PK168375

PATIENT
  Age: 30 Month
  Sex: Female

DRUGS (1)
  1. ACLASTA [Suspect]
     Active Substance: ZOLEDRONIC ACID
     Indication: OSTEOGENESIS IMPERFECTA
     Dosage: 9 ML, TWICE A YEAR
     Route: 042
     Dates: start: 20140325

REACTIONS (3)
  - Prescribed overdose [Unknown]
  - Fracture [Recovering/Resolving]
  - Product use issue [Unknown]

NARRATIVE: CASE EVENT DATE: 20151122
